FAERS Safety Report 8000080-0 (Version None)
Quarter: 2011Q4

REPORT INFORMATION
  Report Type: 
  Country: None (occurrence: None)
  Receive Date: 20111222
  Receipt Date: 20111209
  Transmission Date: 20120403
  Serious: Yes (Hospitalization)
  Sender: FDA-Public Use
  Company Number: US-ELI_LILLY_AND_COMPANY-US201108002097

PATIENT
  Sex: Female

DRUGS (21)
  1. CALCIUM [Concomitant]
  2. CONCERTA [Concomitant]
  3. DIVALPROEX SODIUM [Concomitant]
  4. DOCUSATE SODIUM [Concomitant]
  5. PREDNISONE TAB [Concomitant]
  6. ARICEPT [Concomitant]
  7. ONE-A-DAY [Concomitant]
  8. PYRIDOSTIGMINE BROMIDE [Concomitant]
  9. BUSPIRONE HCL [Concomitant]
  10. VITAMIN D [Concomitant]
  11. INSULIN GLARGINE [Concomitant]
  12. FORTEO [Suspect]
     Indication: OSTEOPOROSIS
     Dosage: 20 UG, QD
     Dates: start: 20101001, end: 20110401
  13. ANTIHISTAMINES [Concomitant]
  14. ENABLEX                            /01760402/ [Concomitant]
  15. LISINOPRIL [Concomitant]
  16. LEVOTHYROXINE SODIUM [Concomitant]
  17. FUROSEMIDE [Concomitant]
  18. LAMOTRIGINE [Concomitant]
  19. LORAZEPAM [Concomitant]
  20. METHOTREXATE [Concomitant]
  21. FOLIC ACID [Concomitant]

REACTIONS (4)
  - MYASTHENIA GRAVIS [None]
  - CATARACT [None]
  - HEADACHE [None]
  - INTRAOCULAR PRESSURE INCREASED [None]
